FAERS Safety Report 25726751 (Version 1)
Quarter: 2025Q3

REPORT INFORMATION
  Report Type: Spontaneous
  Country: US (occurrence: None)
  Receive Date: 20250825
  Receipt Date: 20250825
  Transmission Date: 20251021
  Serious: Yes (Other)
  Sender: FDA-CTU
  Company Number: None

PATIENT
  Age: 67 Year
  Sex: Male
  Weight: 74.25 kg

DRUGS (1)
  1. SCRUB-STAT [Suspect]
     Active Substance: CHLORHEXIDINE GLUCONATE
     Indication: Preoperative care
     Dosage: 1 4 %; DAILY  TOPICAL ? ?
     Route: 061
     Dates: start: 20250620, end: 20250728

REACTIONS (6)
  - Rash [None]
  - Pruritus [None]
  - Anorectal discomfort [None]
  - Testicular disorder [None]
  - Burning sensation [None]
  - Discomfort [None]

NARRATIVE: CASE EVENT DATE: 20050725
